FAERS Safety Report 7901005-6 (Version None)
Quarter: 2011Q4

REPORT INFORMATION
  Report Type: 
  Country: None (occurrence: None)
  Receive Date: 20111108
  Receipt Date: 20111103
  Transmission Date: 20120403
  Serious: Yes (Other)
  Sender: FDA-Public Use
  Company Number: CA-PFIZER INC-2011269341

PATIENT
  Age: 70 Year
  Sex: Female

DRUGS (2)
  1. TRUSOPT [Concomitant]
     Indication: GLAUCOMA
     Dosage: 1 GTT, 1X/DAY IN THE MORNING
     Dates: start: 20100101
  2. XALATAN [Suspect]
     Indication: GLAUCOMA
     Dosage: 1 GTT IN EACH EYE, 1X/DAY
     Route: 047

REACTIONS (2)
  - PHOTOPSIA [None]
  - CATARACT [None]
